FAERS Safety Report 7472958-8 (Version None)
Quarter: 2011Q2

REPORT INFORMATION
  Report Type: 
  Country: None (occurrence: None)
  Receive Date: 20110503
  Receipt Date: 20110418
  Transmission Date: 20111010
  Serious: Yes (Other)
  Sender: FDA-Public Use
  Company Number: 017725

PATIENT
  Sex: Male
  Weight: 118 kg

DRUGS (2)
  1. CIMZIA [Suspect]
     Indication: CROHN'S DISEASE
     Dosage: 200 MG 1X/4 WEEKS, SUBCUTANEOUS, SUBCUTANEOUS, SUBCUTANEOUS, SUBCUTANEOUS
     Route: 058
     Dates: start: 20081020
  2. CIMZIA [Suspect]
     Indication: CROHN'S DISEASE
     Dosage: 200 MG 1X/4 WEEKS, SUBCUTANEOUS, SUBCUTANEOUS, SUBCUTANEOUS, SUBCUTANEOUS
     Route: 058
     Dates: end: 20110303

REACTIONS (7)
  - BACK PAIN [None]
  - CYSTITIS [None]
  - URINARY TRACT INFECTION [None]
  - DIARRHOEA [None]
  - ABSCESS LIMB [None]
  - HYPONATRAEMIA [None]
  - ABDOMINAL PAIN LOWER [None]
